FAERS Safety Report 6372480-6 (Version None)
Quarter: 2009Q3

REPORT INFORMATION
  Report Type: 
  Country: None (occurrence: None)
  Receive Date: 20090924
  Receipt Date: 20090720
  Transmission Date: 20100115
  Serious: Yes (Other)
  Sender: FDA-Public Use
  Company Number: US-ASTRAZENECA-2008UW17964

PATIENT
  Age: 545 Month
  Sex: Female

DRUGS (3)
  1. SEROQUEL [Suspect]
     Indication: ANXIETY
     Dosage: 25MG TO 850MG
     Route: 048
     Dates: start: 20060101
  2. SEROQUEL [Suspect]
     Indication: DEPRESSION
     Dosage: 25MG TO 850MG
     Route: 048
     Dates: start: 20060101
  3. SEROQUEL [Suspect]
     Indication: BIPOLAR DISORDER
     Dosage: 25MG TO 850MG
     Route: 048
     Dates: start: 20060101

REACTIONS (3)
  - DIABETES MELLITUS [None]
  - KETOACIDOSIS [None]
  - PANCREATITIS [None]
